FAERS Safety Report 15639697 (Version 2)
Quarter: 2018Q4

REPORT INFORMATION
  Report Type: Spontaneous
  Country: FR (occurrence: FR)
  Receive Date: 20181120
  Receipt Date: 20181122
  Transmission Date: 20190205
  Serious: Yes (Hospitalization)
  Sender: FDA-Public Use
  Company Number: FR-PROVELL PHARMACEUTICALS-2059081

PATIENT
  Age: 36 Year
  Sex: Female
  Weight: 57 kg

DRUGS (6)
  1. EUTHYROX [Suspect]
     Active Substance: LEVOTHYROXINE SODIUM
     Indication: PRODUCT USED FOR UNKNOWN INDICATION
     Route: 048
  2. URBANYL [Concomitant]
     Active Substance: CLOBAZAM
     Route: 048
  3. FENOFIBRATE. [Concomitant]
     Active Substance: FENOFIBRATE
     Route: 048
  4. SCOPODERM [Concomitant]
     Active Substance: SCOPOLAMINE
  5. MICROPAKINE(ERGENYL CHRONO) [Suspect]
     Active Substance: VALPROIC ACID
     Route: 048
     Dates: end: 20171124
  6. LEVETIRACETAM. [Concomitant]
     Active Substance: LEVETIRACETAM
     Route: 048

REACTIONS (1)
  - Myelodysplastic syndrome [Recovered/Resolved]

NARRATIVE: CASE EVENT DATE: 20171121
